FAERS Safety Report 9292993 (Version 1)
Quarter: 2013Q2

REPORT INFORMATION
  Report Type: Spontaneous
  Country: US (occurrence: US)
  Receive Date: 20130516
  Receipt Date: 20130516
  Transmission Date: 20140414
  Serious: No
  Sender: FDA-Public Use
  Company Number: US-PFIZER INC-2013146741

PATIENT
  Age: 62 Year
  Sex: Female
  Weight: 64.85 kg

DRUGS (2)
  1. ESTRING [Suspect]
     Indication: ATROPHIC VULVOVAGINITIS
     Dosage: 2 MG, EVERY 3 MONTHS
     Route: 067
     Dates: start: 2000
  2. ESTRING [Suspect]
     Dosage: UNK, ONCE EVERY THREE MONTHS
     Route: 067

REACTIONS (1)
  - Drug ineffective [Unknown]
